FAERS Safety Report 9346561 (Version 1)
Quarter: 2013Q2

REPORT INFORMATION
  Report Type: Spontaneous
  Country: CA (occurrence: CA)
  Receive Date: 20130613
  Receipt Date: 20130613
  Transmission Date: 20140414
  Serious: Yes (Other)
  Sender: FDA-Public Use
  Company Number: CA-AMGEN-CANSP2013041215

PATIENT
  Age: 82 Year
  Sex: Female

DRUGS (3)
  1. PROLIA [Suspect]
     Indication: PRODUCT USED FOR UNKNOWN INDICATION
     Dosage: 1 DF, UNK
     Route: 051
  2. CALCIUM [Concomitant]
     Route: 048
  3. VITAMIN D                          /00107901/ [Concomitant]

REACTIONS (4)
  - Choking [Unknown]
  - Micturition urgency [Unknown]
  - Throat tightness [Unknown]
  - Weight decreased [Unknown]
